FAERS Safety Report 19460711 (Version 1)
Quarter: 2021Q2

REPORT INFORMATION
  Report Type: Spontaneous
  Country: CA (occurrence: CA)
  Receive Date: 20210625
  Receipt Date: 20210625
  Transmission Date: 20210717
  Serious: Yes (Hospitalization)
  Sender: FDA-Public Use
  Company Number: CA-AUROBINDO-AUR-APL-2021-026573

PATIENT
  Age: 85 Year
  Sex: Male
  Weight: 84 kg

DRUGS (3)
  1. AMOXI?CLAV [Suspect]
     Active Substance: AMOXICILLIN\CLAVULANATE POTASSIUM
     Indication: PYREXIA
     Dosage: 1 DOSAGE FORM, TWO TIMES A DAY
     Route: 048
  2. PIPERACILLIN+TAZOBACTAM INJECTION [Suspect]
     Active Substance: PIPERACILLIN SODIUM\TAZOBACTAM SODIUM
     Indication: ABDOMINAL PAIN
  3. PIPERACILLIN+TAZOBACTAM INJECTION [Suspect]
     Active Substance: PIPERACILLIN SODIUM\TAZOBACTAM SODIUM
     Indication: PYREXIA
     Dosage: 3375 GRAM, FOUR TIMES/DAY
     Route: 041

REACTIONS (8)
  - Nausea [Unknown]
  - Decreased appetite [Unknown]
  - Asthenia [Unknown]
  - Abdominal pain [Unknown]
  - Vomiting [Unknown]
  - Clostridium test positive [Unknown]
  - Presyncope [Unknown]
  - Diarrhoea [Unknown]
